FAERS Safety Report 7017983-6 (Version None)
Quarter: 2010Q3

REPORT INFORMATION
  Report Type: 
  Country: None (occurrence: None)
  Receive Date: 20100927
  Receipt Date: 20100927
  Transmission Date: 20110219
  Serious: Yes (Other)
  Sender: FDA-Public Use
  Company Number: None

PATIENT
  Age: 61 Year
  Sex: Female

DRUGS (8)
  1. LETAIRIS [Suspect]
     Indication: PULMONARY ARTERIAL HYPERTENSION
     Dosage: LETAIRIS 10MG DAILY ORAL
     Route: 048
     Dates: start: 20100624, end: 20100908
  2. FUROSEMIDE [Concomitant]
  3. NOVOLIN 70/30 [Concomitant]
  4. LISINOPRIL [Concomitant]
  5. OMEPRAZOLE [Concomitant]
  6. SIMVASTATIN [Concomitant]
  7. METOPROLOL TARTRATE [Concomitant]
  8. GLIPIZIDE [Concomitant]

REACTIONS (2)
  - FATIGUE [None]
  - OEDEMA PERIPHERAL [None]
